FAERS Safety Report 8756382 (Version 2)
Quarter: 2012Q4

REPORT INFORMATION
  Report Type: 
  Country: AR (occurrence: AR)
  Receive Date: 20120828
  Receipt Date: 20120920
  Transmission Date: 20130627
  Serious: Yes (Death, Hospitalization, Other)
  Sender: FDA-Public Use
  Company Number: AR-RANBAXY-2012RR-59426

PATIENT
  Age: 80 Year
  Sex: Female

DRUGS (1)
  1. NAPROXEN [Suspect]
     Indication: PRODUCT USED FOR UNKNOWN INDICATION
     Dosage: 375 mg, bid
     Route: 065

REACTIONS (2)
  - Gastric ulcer [Recovering/Resolving]
  - Gastrointestinal haemorrhage [Not Recovered/Not Resolved]
